FAERS Safety Report 15494220 (Version 1)
Quarter: 2018Q4

REPORT INFORMATION
  Report Type: Spontaneous
  Country: CN (occurrence: CN)
  Receive Date: 20181012
  Receipt Date: 20181012
  Transmission Date: 20190205
  Serious: Yes (Other)
  Sender: FDA-Public Use
  Company Number: CN-PFIZER INC-2018406670

PATIENT
  Age: 86 Year
  Sex: Female
  Weight: 42 kg

DRUGS (1)
  1. ATORVASTATIN CALCIUM. [Suspect]
     Active Substance: ATORVASTATIN CALCIUM
     Indication: ARTERIOSCLEROSIS CORONARY ARTERY
     Dosage: 20 MG, 1X/DAY
     Route: 048
     Dates: start: 20180803, end: 20180803

REACTIONS (4)
  - Heart rate decreased [Unknown]
  - Supraventricular extrasystoles [Unknown]
  - Palpitations [Recovering/Resolving]
  - Atrioventricular block first degree [Unknown]

NARRATIVE: CASE EVENT DATE: 20180803
